FAERS Safety Report 8301366-2 (Version None)
Quarter: 2012Q2

REPORT INFORMATION
  Report Type: 
  Country: None (occurrence: None)
  Receive Date: 20120420
  Receipt Date: 20120413
  Transmission Date: 20120825
  Serious: Yes (Death)
  Sender: FDA-Public Use
  Company Number: GB-ROCHE-1060539

PATIENT
  Sex: Male

DRUGS (1)
  1. LUCENTIS [Suspect]
     Indication: AGE-RELATED MACULAR DEGENERATION
     Dosage: TOTAL OF 7 TREATMENTS IN 23 MONTHS
     Route: 050
     Dates: start: 20091230

REACTIONS (1)
  - CARDIAC FAILURE [None]
